FAERS Safety Report 8828638 (Version 2)
Quarter: 2012Q4

REPORT INFORMATION
  Report Type: Report from Study
  Country: ES (occurrence: ES)
  Receive Date: 20121005
  Receipt Date: 20121022
  Transmission Date: 20130627
  Serious: Yes (Death, Hospitalization, Disabling)
  Sender: FDA-Public Use
  Company Number: ES-CELGENEUS-144-50794-12092930

PATIENT
  Age: 77 Year
  Sex: Female

DRUGS (4)
  1. VIDAZA [Suspect]
     Indication: RAEB
     Dosage: 110 Milligram
     Route: 058
     Dates: start: 20120305, end: 20120831
  2. FUROSEMIDE [Concomitant]
     Indication: EDEMA LOWER LIMB
     Dosage: 20 Milligram
     Route: 048
  3. METAMIZOLE [Concomitant]
     Indication: PAIN
     Route: 048
  4. G-CSF [Concomitant]
     Indication: NEUTROPENIA
     Dosage: micrograms/L
     Route: 058

REACTIONS (3)
  - Subdural haematoma [Fatal]
  - Craniocerebral injury [Unknown]
  - Coma [Not Recovered/Not Resolved]
